FAERS Safety Report 9339384 (Version 2)
Quarter: 2013Q3

REPORT INFORMATION
  Report Type: Spontaneous
  Country: US (occurrence: US)
  Receive Date: 20130610
  Receipt Date: 20130920
  Transmission Date: 20140515
  Serious: Yes (Hospitalization)
  Sender: FDA-Public Use
  Company Number: US-BIOGENIDEC-2013BI049465

PATIENT
  Age: 61 Year
  Sex: Female

DRUGS (2)
  1. TYSABRI [Suspect]
     Indication: MULTIPLE SCLEROSIS
     Route: 042
     Dates: start: 20130219
  2. CLARITIN [Concomitant]
     Indication: INJECTION SITE PRURITUS

REACTIONS (7)
  - Myocardial infarction [Unknown]
  - Arterial occlusive disease [Recovered/Resolved]
  - Injection site pruritus [Not Recovered/Not Resolved]
  - Dizziness [Unknown]
  - Mood swings [Unknown]
  - Cardiac disorder [Not Recovered/Not Resolved]
  - Diabetes mellitus [Not Recovered/Not Resolved]
